FAERS Safety Report 7953467-6 (Version None)
Quarter: 2011Q4

REPORT INFORMATION
  Report Type: 
  Country: None (occurrence: None)
  Receive Date: 20111202
  Receipt Date: 20111129
  Transmission Date: 20120403
  Serious: No
  Sender: FDA-Public Use
  Company Number: US-PFIZER INC-2011035793

PATIENT
  Sex: Female
  Weight: 56.689 kg

DRUGS (11)
  1. WARFARIN [Concomitant]
     Dosage: 4 MG, 1X/DAY
  2. ZOCOR [Concomitant]
     Dosage: 20 MG, 1X/DAY
  3. METHOTREXATE [Concomitant]
     Dosage: 3 TABLETS, WEEKLY
  4. COREG [Concomitant]
     Dosage: 3.125 MG, 2X/DAY
  5. NORVASC [Concomitant]
     Dosage: 10 MG, 1X/DAY
  6. AMIODARONE [Concomitant]
     Dosage: 200 MG, 1X/DAY
  7. NEURONTIN [Suspect]
     Indication: NEUROPATHY PERIPHERAL
     Dosage: 1ML SOLUTION IN MORNING AND 3ML SOLUTION AT NIGHT
     Dates: start: 20100713
  8. FOSAMAX [Concomitant]
     Dosage: 70 MG, WEEKLY
  9. NEURONTIN [Suspect]
     Indication: SPINAL COLUMN STENOSIS
  10. PLAVIX [Concomitant]
     Dosage: 75 MG, 1X/DAY
  11. NEURONTIN [Suspect]
     Indication: CONVULSION
     Dosage: UNK, 1X/DAY
     Route: 048
     Dates: start: 20090101

REACTIONS (3)
  - ORAL DISCOMFORT [None]
  - DYSGEUSIA [None]
  - THROAT IRRITATION [None]
